FAERS Safety Report 4662757-4 (Version None)
Quarter: 2005Q2

REPORT INFORMATION
  Report Type: 
  Country: None (occurrence: None)
  Receive Date: 20050516
  Receipt Date: 20050504
  Transmission Date: 20051028
  Serious: Yes (Death, Hospitalization)
  Sender: FDA-Public Use
  Company Number: US-BRISTOL-MYERS SQUIBB COMPANY-12956736

PATIENT
  Age: 46 Year
  Sex: Male

DRUGS (5)
  1. BUSPAR [Suspect]
     Route: 048
  2. CLOZAPINE [Suspect]
     Indication: SCHIZOAFFECTIVE DISORDER
     Route: 048
     Dates: start: 20031008, end: 20050201
  3. CLOZAPINE [Suspect]
     Indication: POLYSUBSTANCE DEPENDENCE
     Route: 048
     Dates: start: 20031008, end: 20050201
  4. PAXIL [Suspect]
  5. TIAGABINE [Concomitant]

REACTIONS (2)
  - CONVULSION [None]
  - DEATH [None]
